FAERS Safety Report 7774621-2 (Version None)
Quarter: 2011Q3

REPORT INFORMATION
  Report Type: 
  Country: None (occurrence: None)
  Receive Date: 20110923
  Receipt Date: 20110920
  Transmission Date: 20111222
  Serious: Yes (Life-Threatening)
  Sender: FDA-Public Use
  Company Number: ES-ROCHE-803856

PATIENT
  Age: 56 Year
  Sex: Male

DRUGS (4)
  1. METHYLPREDNISOLONE [Concomitant]
  2. TACROLIMUS [Concomitant]
  3. VALCYTE [Suspect]
     Indication: CYTOMEGALOVIRUS INFECTION
     Dosage: FILM COATED TABLET, FREQUENCY: 1 DAY
     Route: 048
     Dates: start: 20110429, end: 20110627
  4. MYCOPHENOLATE MOFETIL [Concomitant]

REACTIONS (1)
  - HYPONATRAEMIA [None]
